FAERS Safety Report 25551659 (Version 1)
Quarter: 2025Q3

REPORT INFORMATION
  Report Type: Spontaneous
  Country: US (occurrence: None)
  Receive Date: 20250713
  Receipt Date: 20250713
  Transmission Date: 20251020
  Serious: Yes (Disabling)
  Sender: FDA-CTU
  Company Number: None

PATIENT
  Age: 65 Year
  Sex: Female
  Weight: 114.75 kg

DRUGS (5)
  1. URISTAT ULTRA [Suspect]
     Active Substance: PHENAZOPYRIDINE HYDROCHLORIDE
     Indication: Urinary tract infection
     Dosage: OTHER QUANTITY : 2 TABLET(S);?FREQUENCY : 3 TIMES A DAY;?
     Route: 048
     Dates: start: 20250707, end: 20250707
  2. ALPRAZOLAM [Concomitant]
     Active Substance: ALPRAZOLAM
  3. BACLOFEN [Concomitant]
     Active Substance: BACLOFEN
  4. ALBUTEROL [Concomitant]
     Active Substance: ALBUTEROL
  5. Promethazine suppositories [Concomitant]

REACTIONS (8)
  - Urinary tract infection [None]
  - Swollen tongue [None]
  - Lip swelling [None]
  - Eye irritation [None]
  - Erythema [None]
  - Burning sensation [None]
  - Dyspnoea [None]
  - Skin burning sensation [None]

NARRATIVE: CASE EVENT DATE: 20250707
